FAERS Safety Report 5094057-5 (Version None)
Quarter: 2006Q3

REPORT INFORMATION
  Report Type: 
  Country: None (occurrence: None)
  Receive Date: 20060831
  Receipt Date: 20060113
  Transmission Date: 20061208
  Serious: Yes (Hospitalization)
  Sender: FDA-Public Use
  Company Number: US-ROCHE-432382

PATIENT
  Age: 23 Year

DRUGS (1)
  1. ACCUTANE [Suspect]
     Route: 048
     Dates: start: 20001003, end: 20010126

REACTIONS (3)
  - CROHN'S DISEASE [None]
  - INFLAMMATORY BOWEL DISEASE [None]
  - SMALL INTESTINAL OBSTRUCTION [None]
